FAERS Safety Report 18878887 (Version 1)
Quarter: 2021Q1

REPORT INFORMATION
  Report Type: Report from Study
  Country: ZA (occurrence: ZA)
  Receive Date: 20210211
  Receipt Date: 20210211
  Transmission Date: 20210420
  Serious: Yes (Death)
  Sender: FDA-Public Use
  Company Number: ZA-AMGEN LTD-ZAFSL2021020552

PATIENT
  Age: 57 Year
  Sex: Female

DRUGS (1)
  1. ARANESP [Suspect]
     Active Substance: DARBEPOETIN ALFA
     Indication: CHRONIC KIDNEY DISEASE
     Dosage: 50 MICROGRAM, Q2WK
     Route: 058
     Dates: start: 20180601, end: 202101

REACTIONS (2)
  - COVID-19 [Fatal]
  - Disease complication [Fatal]
